FAERS Safety Report 9711065 (Version 2)
Quarter: 2013Q4

REPORT INFORMATION
  Report Type: Spontaneous
  Country: US (occurrence: US)
  Receive Date: 20131126
  Receipt Date: 20131126
  Transmission Date: 20140711
  Serious: No
  Sender: FDA-Public Use
  Company Number: US-BRISTOL-MYERS SQUIBB COMPANY-19044528

PATIENT
  Age: 57 Year
  Sex: Female
  Weight: 122.45 kg

DRUGS (3)
  1. BYDUREON [Suspect]
     Indication: TYPE 2 DIABETES MELLITUS
     Dosage: PRESCRIPTION:241161721
     Dates: start: 20130617
  2. LISINOPRIL [Concomitant]
  3. SIMVASTATIN [Concomitant]

REACTIONS (3)
  - Underdose [Unknown]
  - Product quality issue [Unknown]
  - Injection site swelling [Not Recovered/Not Resolved]
